FAERS Safety Report 14101109 (Version 1)
Quarter: 2017Q4

REPORT INFORMATION
  Report Type: Other
  Country: FR (occurrence: FR)
  Receive Date: 20171018
  Receipt Date: 20171018
  Transmission Date: 20180321
  Serious: Yes (Other)
  Sender: FDA-Public Use
  Company Number: FR-TAKEDA-2017TUS021737

PATIENT
  Age: 71 Year
  Sex: Female

DRUGS (1)
  1. ADENURIC [Suspect]
     Active Substance: FEBUXOSTAT
     Indication: HYPERURICAEMIA
     Dosage: 80 MG, QD
     Route: 048
     Dates: start: 201705

REACTIONS (2)
  - Gait disturbance [Not Recovered/Not Resolved]
  - Neuromuscular pain [Not Recovered/Not Resolved]

NARRATIVE: CASE EVENT DATE: 201707
